FAERS Safety Report 21593857 (Version 3)
Quarter: 2022Q4

REPORT INFORMATION
  Report Type: Report from Study
  Country: US (occurrence: US)
  Receive Date: 20221115
  Receipt Date: 20221223
  Transmission Date: 20230113
  Serious: No
  Sender: FDA-Public Use
  Company Number: US-002147023-NVSC2022US252659

PATIENT
  Sex: Female

DRUGS (4)
  1. MAYZENT [Suspect]
     Active Substance: SIPONIMOD
     Indication: Multiple sclerosis
     Dosage: 1 MG, QID
     Route: 048
     Dates: start: 20200127
  2. MAYZENT [Suspect]
     Active Substance: SIPONIMOD
     Dosage: 2 DOSAGE FORM, (2 PILLS) QD
     Route: 048
  3. MAYZENT [Suspect]
     Active Substance: SIPONIMOD
     Dosage: 1 MG, EVERY OTHER DAY
     Route: 048
  4. VITAMINS [Concomitant]
     Active Substance: VITAMINS
     Indication: Product used for unknown indication
     Dosage: 1000, QD
     Route: 065

REACTIONS (2)
  - White blood cell count decreased [Unknown]
  - Lymphocyte count increased [Unknown]
